FAERS Safety Report 10434585 (Version 5)
Quarter: 2014Q4

REPORT INFORMATION
  Report Type: Spontaneous
  Country: US (occurrence: US)
  Receive Date: 20140905
  Receipt Date: 20141031
  Transmission Date: 20150528
  Serious: Yes (Hospitalization, Other)
  Sender: FDA-Public Use
  Company Number: US-GILEAD-2014-0114311

PATIENT
  Age: 76 Year
  Sex: Female

DRUGS (4)
  1. OXYGEN. [Concomitant]
     Active Substance: OXYGEN
  2. REMODULIN [Concomitant]
     Active Substance: TREPROSTINIL
  3. LETAIRIS [Suspect]
     Active Substance: AMBRISENTAN
     Indication: PRODUCT USED FOR UNKNOWN INDICATION
     Dosage: 5 MG, QD
     Route: 065
     Dates: start: 20110821
  4. REVATIO [Concomitant]
     Active Substance: SILDENAFIL CITRATE

REACTIONS (9)
  - Pulmonary arterial hypertension [Unknown]
  - Catheter site pruritus [Unknown]
  - Device malfunction [Unknown]
  - Catheter site erythema [Unknown]
  - Catheter site pain [Unknown]
  - Infusion site rash [Unknown]
  - Device issue [Unknown]
  - Pruritus [Unknown]
  - Catheter site discharge [Unknown]

NARRATIVE: CASE EVENT DATE: 201410
